FAERS Safety Report 11984913 (Version 1)
Quarter: 2016Q1

REPORT INFORMATION
  Report Type: Spontaneous
  Country: US (occurrence: US)
  Receive Date: 20160201
  Receipt Date: 20160201
  Transmission Date: 20160526
  Serious: No
  Sender: FDA-Public Use
  Company Number: US-PFIZER INC-2016055434

PATIENT
  Age: 78 Year
  Sex: Female

DRUGS (1)
  1. SUTENT [Suspect]
     Active Substance: SUNITINIB MALATE
     Dosage: 50 MG, CYCLIC (SUTENT 50 MG - 2 WEEKS ON/1 WEEK OFF )

REACTIONS (9)
  - Stomatitis [Unknown]
  - Feeling abnormal [Unknown]
  - Decreased appetite [Unknown]
  - Pain in extremity [Unknown]
  - Palmar-plantar erythrodysaesthesia syndrome [Unknown]
  - Gait disturbance [Unknown]
  - Pain [Unknown]
  - Irritability [Unknown]
  - Diarrhoea [Unknown]
